FAERS Safety Report 9185483 (Version 6)
Quarter: 2015Q2

REPORT INFORMATION
  Report Type: Spontaneous
  Country: US (occurrence: US)
  Receive Date: 20121031
  Receipt Date: 20150608
  Transmission Date: 20150821
  Serious: Yes (Hospitalization, Other)
  Sender: FDA-Public Use
  Company Number: US-009507513-1210USA012635

PATIENT
  Sex: Male
  Weight: 76.19 kg

DRUGS (1)
  1. PROPECIA [Suspect]
     Active Substance: FINASTERIDE
     Indication: ANDROGENETIC ALOPECIA
     Dosage: 1 MG, QD
     Route: 048
     Dates: start: 2002, end: 20120616

REACTIONS (20)
  - Subarachnoid haemorrhage [Recovering/Resolving]
  - Diabetes mellitus [Unknown]
  - Device failure [Recovering/Resolving]
  - Blood pressure systolic increased [Unknown]
  - Tinea versicolour [Unknown]
  - Infertility [Unknown]
  - Infertility [Unknown]
  - Sexual dysfunction [Not Recovered/Not Resolved]
  - Erectile dysfunction [Unknown]
  - Anxiety [Recovered/Resolved]
  - Hypertension [Unknown]
  - Pain [Unknown]
  - Hydrocephalus [Recovering/Resolving]
  - Pain [Unknown]
  - High density lipoprotein decreased [Unknown]
  - Intervertebral disc protrusion [Unknown]
  - Cognitive disorder [Not Recovered/Not Resolved]
  - Hypercholesterolaemia [Unknown]
  - Vasectomy reversal [Unknown]
  - Headache [Unknown]

NARRATIVE: CASE EVENT DATE: 200412
